FAERS Safety Report 6917904-8 (Version None)
Quarter: 2010Q3

REPORT INFORMATION
  Report Type: 
  Country: None (occurrence: None)
  Receive Date: 20100810
  Receipt Date: 20100804
  Transmission Date: 20110219
  Serious: Yes (Hospitalization)
  Sender: FDA-Public Use
  Company Number: FR-AMGEN-KDC422179

PATIENT
  Sex: Female
  Weight: 73 kg

DRUGS (11)
  1. VECTIBIX [Suspect]
     Indication: BREAST CANCER
     Dates: start: 20100223
  2. TAXOTERE [Suspect]
     Dates: start: 20100518
  3. CETYLPYRIDINIUM CHLORIDE [Concomitant]
     Dates: start: 20100224
  4. CHLOROBUTANOL/POLYVINYL ALCOHOL [Concomitant]
     Dates: start: 20100224
  5. SODIUM BICARBONATE [Concomitant]
     Dates: start: 20100224
  6. ZINC [Concomitant]
     Dates: start: 20100503
  7. FLUOROURACIL [Concomitant]
     Dates: start: 20100223
  8. FLUOROURACIL [Concomitant]
     Dates: start: 20100223
  9. EPIRUBICIN [Concomitant]
     Dates: start: 20100223
  10. EPIRUBICIN [Concomitant]
     Dates: start: 20100223
  11. CYCLOPHOSPHAMIDE [Concomitant]
     Dates: start: 20100223

REACTIONS (1)
  - OCULAR TOXICITY [None]
